FAERS Safety Report 15760299 (Version 1)
Quarter: 2018Q4

REPORT INFORMATION
  Report Type: Spontaneous
  Country: CA (occurrence: CA)
  Receive Date: 20181226
  Receipt Date: 20181226
  Transmission Date: 20190205
  Serious: Yes (Hospitalization)
  Sender: FDA-Public Use
  Company Number: CA-PFIZER INC-2018522371

PATIENT
  Age: 62 Year
  Sex: Male

DRUGS (8)
  1. SOLU-MEDROL [Suspect]
     Active Substance: METHYLPREDNISOLONE SODIUM SUCCINATE
     Dosage: UNK UNK, AS NEEDED
     Route: 042
  2. MEDROL [Suspect]
     Active Substance: METHYLPREDNISOLONE
     Dosage: UNK UNK, AS NEEDED
     Route: 048
  3. SALOFALK [MESALAZINE] [Concomitant]
     Dosage: UNK, AS NEEDED
     Route: 048
  4. SALOFALK [MESALAZINE] [Concomitant]
     Dosage: UNK, AS NEEDED
     Route: 054
  5. PREDNISONE. [Concomitant]
     Active Substance: PREDNISONE
     Dosage: UNK
  6. HEPARIN [Concomitant]
     Active Substance: HEPARIN SODIUM
     Indication: DIABETES MELLITUS
     Dosage: 5000 IU, EVERY HOUR
     Route: 058
  7. SOLU-MEDROL [Suspect]
     Active Substance: METHYLPREDNISOLONE SODIUM SUCCINATE
     Dosage: 20 MG, 3X/DAY
     Route: 042
  8. POTASSIUM POLYSTYRENE SULFONATE [Concomitant]
     Dosage: UNK
     Route: 048
     Dates: end: 20181214

REACTIONS (2)
  - Colitis ulcerative [Unknown]
  - Condition aggravated [Unknown]
